FAERS Safety Report 15413317 (Version 2)
Quarter: 2019Q1

REPORT INFORMATION
  Report Type: Spontaneous
  Country: US (occurrence: US)
  Receive Date: 20180921
  Receipt Date: 20190116
  Transmission Date: 20190417
  Serious: No
  Sender: FDA-Public Use
  Company Number: US-PFIZER INC-2017389134

PATIENT
  Age: 13 Year
  Sex: Female

DRUGS (2)
  1. GENOTROPIN [Suspect]
     Active Substance: SOMATROPIN
     Dosage: 2.2 MG, DAILY
     Dates: start: 20171114
  2. GENOTROPIN [Suspect]
     Active Substance: SOMATROPIN
     Dosage: 2.3 MG, DAILY

REACTIONS (6)
  - Insulin-like growth factor increased [Unknown]
  - Carbon dioxide decreased [Unknown]
  - White blood cell count decreased [Unknown]
  - Blood thyroid stimulating hormone increased [Unknown]
  - Product prescribing error [Unknown]
  - Bone density increased [Unknown]
